FAERS Safety Report 7489599-9 (Version None)
Quarter: 2011Q2

REPORT INFORMATION
  Report Type: 
  Country: None (occurrence: None)
  Receive Date: 20110519
  Receipt Date: 20110509
  Transmission Date: 20111010
  Serious: Yes (Other)
  Sender: FDA-Public Use
  Company Number: US-BIOGENIDEC-2011BI017442

PATIENT
  Age: 1 Week
  Sex: Female
  Weight: 3 kg

DRUGS (2)
  1. AVONEX [Suspect]
     Indication: DRUG EXPOSURE DURING PREGNANCY
     Route: 064
     Dates: start: 20010226, end: 20030101
  2. AVONEX [Suspect]
     Route: 064
     Dates: start: 20030101

REACTIONS (1)
  - INFANTILE APNOEIC ATTACK [None]
